FAERS Safety Report 9280819 (Version 1)
Quarter: 2013Q2

REPORT INFORMATION
  Report Type: Spontaneous
  Country: US (occurrence: None)
  Receive Date: 20130502
  Receipt Date: 20130502
  Transmission Date: 20140414
  Serious: Yes (Hospitalization)
  Sender: FDA-Public Use
  Company Number: US-011513

PATIENT
  Sex: Male

DRUGS (6)
  1. DEGARELIX [Suspect]
     Indication: PROSTATE CANCER
     Route: 058
     Dates: start: 201107
  2. MORPHINE SULFATE [Suspect]
     Indication: PAIN
     Dosage: 15 MG 1-2 EVERY 3-4 HOURS ORAL
  3. SUNITINIB MALATE [Suspect]
     Indication: PROSTATE CANCER METASTATIC
     Route: 048
     Dates: start: 20120410, end: 20120629
  4. ABIRATERONE ACETATE 1000 MG [Suspect]
     Indication: PROSTATE CANCER METASTATIC
     Route: 048
     Dates: start: 20120117, end: 20120629
  5. HYDROCODONE [Suspect]
     Indication: PAIN
     Dosage: 10/325 MG EVERY 4 HOURS PRN
     Dates: start: 201107
  6. ZOMETA [Suspect]
     Indication: PROPHYLAXIS
     Route: 042
     Dates: start: 201107

REACTIONS (4)
  - Vomiting [None]
  - Dehydration [None]
  - Pain [None]
  - Haemoglobin decreased [None]
